FAERS Safety Report 16696133 (Version 1)
Quarter: 2019Q3

REPORT INFORMATION
  Report Type: Spontaneous
  Country: US (occurrence: US)
  Receive Date: 20190813
  Receipt Date: 20190813
  Transmission Date: 20191004
  Serious: Yes (Disabling)
  Sender: FDA-Public Use
  Company Number: US-EMD SERONO-9109525

PATIENT
  Sex: Female

DRUGS (1)
  1. REBIF [Suspect]
     Active Substance: INTERFERON BETA-1A
     Indication: PRODUCT USED FOR UNKNOWN INDICATION

REACTIONS (5)
  - Bedridden [Unknown]
  - Injection site pain [Unknown]
  - Sluggishness [Unknown]
  - Injection site urticaria [Unknown]
  - Injection site warmth [Unknown]
